FAERS Safety Report 6937469-4 (Version None)
Quarter: 2010Q3

REPORT INFORMATION
  Report Type: 
  Country: None (occurrence: None)
  Receive Date: 20100823
  Receipt Date: 20100823
  Transmission Date: 20110219
  Serious: Yes (Hospitalization)
  Sender: FDA-Public Use
  Company Number: None

PATIENT
  Sex: Female
  Weight: 58.9676 kg

DRUGS (1)
  1. DEXILANT [Suspect]
     Indication: ABDOMINAL PAIN UPPER
     Dosage: 60 MG ONE CAPSULE DAILY PO
     Route: 048
     Dates: start: 20100804, end: 20100811

REACTIONS (2)
  - SINUS TACHYCARDIA [None]
  - SUPRAVENTRICULAR EXTRASYSTOLES [None]
